FAERS Safety Report 24154009 (Version 4)
Quarter: 2024Q4

REPORT INFORMATION
  Report Type: Spontaneous
  Country: US (occurrence: US)
  Receive Date: 20240730
  Receipt Date: 20241007
  Transmission Date: 20250114
  Serious: No
  Sender: LUNDBECK
  Company Number: US-LUNDBECK-DKLU4001745

PATIENT

DRUGS (4)
  1. VYEPTI [Suspect]
     Active Substance: EPTINEZUMAB-JJMR
     Indication: Migraine
     Dosage: 100 MILLIGRAM
     Route: 041
     Dates: start: 20240403
  2. VYEPTI [Suspect]
     Active Substance: EPTINEZUMAB-JJMR
     Dosage: 300 MILLIGRAM
     Route: 041
  3. CYCLOBENZAPRINE [Concomitant]
     Active Substance: CYCLOBENZAPRINE
     Indication: Insomnia
     Dosage: 10 MILLIGRAM
  4. PREGABALIN [Concomitant]
     Active Substance: PREGABALIN
     Indication: Migraine
     Dosage: 75 MILLIGRAM

REACTIONS (6)
  - Headache [Recovered/Resolved]
  - Oropharyngeal pain [Unknown]
  - Nasal congestion [Unknown]
  - Muscle spasms [Unknown]
  - Drug ineffective [Recovered/Resolved]
  - Malaise [Unknown]
